FAERS Safety Report 10103157 (Version 2)
Quarter: 2014Q2

REPORT INFORMATION
  Report Type: Spontaneous
  Country: US (occurrence: US)
  Receive Date: 20140424
  Receipt Date: 20140424
  Transmission Date: 20141212
  Serious: No
  Sender: FDA-Public Use
  Company Number: US-BRISTOL-MYERS SQUIBB COMPANY-20140281

PATIENT
  Age: 78 Year
  Sex: Male

DRUGS (12)
  1. ELIQUIS [Suspect]
     Route: 048
     Dates: start: 20131114
  2. PRILOSEC [Concomitant]
  3. BENICAR HCT [Concomitant]
  4. AMLODIPINE [Concomitant]
  5. METOPROLOL [Concomitant]
  6. TAMSULOSIN [Concomitant]
  7. CRESTOR [Concomitant]
  8. ASPIRIN [Concomitant]
  9. BICALUTAMIDE [Concomitant]
  10. FISH OIL [Concomitant]
  11. MULTIVITAMINS [Concomitant]
  12. LUPRON [Concomitant]

REACTIONS (1)
  - Cough [Unknown]
